FAERS Safety Report 4639054-6 (Version None)
Quarter: 2005Q2

REPORT INFORMATION
  Report Type: 
  Country: None (occurrence: None)
  Receive Date: 20050418
  Receipt Date: 20050404
  Transmission Date: 20051028
  Serious: Yes (Other)
  Sender: FDA-Public Use
  Company Number: HQWYE870507MAR05

PATIENT
  Age: 35 Year
  Sex: Female

DRUGS (4)
  1. EFFEXOR [Suspect]
     Indication: DEPRESSIVE SYMPTOM
     Dosage: ORAL
     Route: 048
  2. EFFEXOR [Suspect]
     Indication: NEUROSIS
     Dosage: ORAL
     Route: 048
  3. EFFEXOR [Suspect]
     Dosage: 225 MG 1X PER 1 DAY; ORAL
     Route: 048
  4. EFFEXOR [Suspect]
     Dosage: 150 MG 1X PER 1 DAY; ORAL
     Route: 048

REACTIONS (7)
  - ABNORMAL BEHAVIOUR [None]
  - COMPULSIONS [None]
  - DRUG INEFFECTIVE [None]
  - EXCORIATION [None]
  - SELF INJURIOUS BEHAVIOUR [None]
  - SKIN HAEMORRHAGE [None]
  - SKIN LESION [None]
